FAERS Safety Report 9023376 (Version 1)
Quarter: 2013Q1

REPORT INFORMATION
  Report Type: Spontaneous
  Country: ES (occurrence: ES)
  Receive Date: 20130117
  Receipt Date: 20130117
  Transmission Date: 20140127
  Serious: Yes (Hospitalization)
  Sender: FDA-Public Use
  Company Number: ES-ROCHE-1180439

PATIENT
  Age: 77 Year
  Sex: Female

DRUGS (2)
  1. MABTHERA [Suspect]
     Indication: B-CELL LYMPHOMA
     Route: 042
     Dates: start: 20121113, end: 20121113
  2. LEVACT [Suspect]
     Indication: B-CELL LYMPHOMA
     Route: 042
     Dates: start: 20121114, end: 20121215

REACTIONS (3)
  - Agranulocytosis [Recovering/Resolving]
  - Mucosal inflammation [Recovering/Resolving]
  - Febrile neutropenia [Recovering/Resolving]
